FAERS Safety Report 7182341-0 (Version None)
Quarter: 2010Q4

REPORT INFORMATION
  Report Type: 
  Country: None (occurrence: None)
  Receive Date: 20101221
  Receipt Date: 20100511
  Transmission Date: 20110411
  Serious: No
  Sender: FDA-Public Use
  Company Number: US-AMGEN-KDL411785

PATIENT

DRUGS (7)
  1. ENBREL [Suspect]
     Indication: PRODUCT USED FOR UNKNOWN INDICATION
     Dosage: 50 MG, QWK
     Route: 058
  2. RAMIPRIL [Concomitant]
     Dosage: 5 MG, UNK
  3. CALCIPOTRIENE [Concomitant]
     Dosage: .05 %, UNK
  4. TAMSULOSIN [Concomitant]
     Dosage: .4 MG, UNK
  5. DIFLORASONE DIACETATE [Concomitant]
     Dosage: .05 %, UNK
  6. NIFEDIPINE [Concomitant]
     Dosage: 60 MG, UNK
  7. TOPROL-XL [Concomitant]
     Dosage: 50 MG, UNK

REACTIONS (1)
  - DRUG INEFFECTIVE [None]
